FAERS Safety Report 9142751 (Version 1)
Quarter: 2013Q1

REPORT INFORMATION
  Report Type: Spontaneous
  Country: US (occurrence: US)
  Receive Date: 20130306
  Receipt Date: 20130306
  Transmission Date: 20140127
  Serious: No
  Sender: FDA-Public Use
  Company Number: US-ENDO PHARMACEUTICALS INC.-OPIR20120048

PATIENT
  Sex: Female

DRUGS (1)
  1. OPANA [Suspect]
     Indication: PAIN
     Dosage: 10 MG
     Route: 048

REACTIONS (2)
  - Bronchitis [Unknown]
  - Withdrawal syndrome [Not Recovered/Not Resolved]
